FAERS Safety Report 5311358-3 (Version None)
Quarter: 2007Q2

REPORT INFORMATION
  Report Type: 
  Country: None (occurrence: None)
  Receive Date: 20070430
  Receipt Date: 20070419
  Transmission Date: 20071010
  Serious: Yes (Other)
  Sender: FDA-Public Use
  Company Number: PHBS2007JP06359

PATIENT
  Age: 44 Year
  Sex: Female
  Weight: 60 kg

DRUGS (9)
  1. NEORAL [Suspect]
     Indication: SYSTEMIC LUPUS ERYTHEMATOSUS
     Dosage: 50 MG/D
     Route: 048
     Dates: start: 20060411, end: 20060619
  2. MEDROL [Concomitant]
     Indication: SYSTEMIC LUPUS ERYTHEMATOSUS
     Dosage: 16 MG/D
     Route: 048
     Dates: start: 20051101
  3. MEDROL [Concomitant]
     Dosage: 12 MG/D
     Route: 048
  4. SUCRALFATE [Concomitant]
     Dosage: 1.5 G/D
     Route: 048
     Dates: start: 20050812, end: 20070108
  5. ADALAT [Concomitant]
     Dosage: 40 MG/D
     Route: 048
     Dates: start: 20050413, end: 20060702
  6. TAGAMET [Concomitant]
     Dosage: 400 MG/D
     Route: 048
     Dates: start: 20050413, end: 20060702
  7. MIKELAN [Concomitant]
     Dosage: 10 MG/D
     Route: 048
     Dates: start: 20050413, end: 20060703
  8. OLMETEC [Concomitant]
     Dosage: 20 MG/D
     Route: 048
     Dates: start: 20050810
  9. OLMETEC [Concomitant]
     Dosage: 30 MG/D
     Route: 048
     Dates: end: 20060731

REACTIONS (5)
  - BLOOD PRESSURE INCREASED [None]
  - EPILEPSY [None]
  - GAZE PALSY [None]
  - HYPOAESTHESIA [None]
  - LOSS OF CONSCIOUSNESS [None]
